FAERS Safety Report 17128911 (Version 1)
Quarter: 2019Q4

REPORT INFORMATION
  Report Type: Spontaneous
  Country: CA (occurrence: CA)
  Receive Date: 20191209
  Receipt Date: 20191209
  Transmission Date: 20200122
  Serious: Yes (Other)
  Sender: FDA-Public Use
  Company Number: CA-TEVA-2019-CA-1113247

PATIENT
  Age: 70 Year
  Sex: Female

DRUGS (26)
  1. LORAZEPAM. [Suspect]
     Active Substance: LORAZEPAM
     Indication: PRODUCT USED FOR UNKNOWN INDICATION
     Route: 065
  2. COSENTYX [Suspect]
     Active Substance: SECUKINUMAB
     Indication: PSORIATIC ARTHROPATHY
     Route: 058
  3. CELEBREX [Concomitant]
     Active Substance: CELECOXIB
  4. IBUPROFEN. [Concomitant]
     Active Substance: IBUPROFEN
  5. OMEGA - 3 [Concomitant]
  6. OXYCONTIN [Concomitant]
     Active Substance: OXYCODONE HYDROCHLORIDE
  7. SIMPONI [Concomitant]
     Active Substance: GOLIMUMAB
  8. MAGNESIUM [Suspect]
     Active Substance: MAGNESIUM
     Indication: PRODUCT USED FOR UNKNOWN INDICATION
     Route: 065
  9. TYLENOL [Concomitant]
     Active Substance: ACETAMINOPHEN
  10. CRESTOR [Concomitant]
     Active Substance: ROSUVASTATIN CALCIUM
  11. MELOXICAM. [Concomitant]
     Active Substance: MELOXICAM
  12. MOBICOX [Concomitant]
     Active Substance: MELOXICAM
  13. SERTRALINE [Suspect]
     Active Substance: SERTRALINE HYDROCHLORIDE
     Indication: PRODUCT USED FOR UNKNOWN INDICATION
     Route: 065
  14. VERAPAMIL HCL [Suspect]
     Active Substance: VERAPAMIL HYDROCHLORIDE
     Indication: PRODUCT USED FOR UNKNOWN INDICATION
     Route: 065
  15. DICLOFENAC/MISOPROSTOL [Concomitant]
     Active Substance: DICLOFENAC SODIUM\MISOPROSTOL
  16. NAPROXEN. [Concomitant]
     Active Substance: NAPROXEN
  17. SULFASALAZINE. [Concomitant]
     Active Substance: SULFASALAZINE
  18. METHOTREXATE. [Suspect]
     Active Substance: METHOTREXATE
     Indication: PRODUCT USED FOR UNKNOWN INDICATION
     Route: 065
  19. PLAQUENIL [Concomitant]
     Active Substance: HYDROXYCHLOROQUINE SULFATE
  20. CALCIUM [Suspect]
     Active Substance: CALCIUM
     Indication: PRODUCT USED FOR UNKNOWN INDICATION
     Route: 065
  21. FENTANYL. [Suspect]
     Active Substance: FENTANYL
     Indication: PRODUCT USED FOR UNKNOWN INDICATION
     Route: 065
  22. ERGOCALCIFEROL. [Suspect]
     Active Substance: ERGOCALCIFEROL
     Indication: PRODUCT USED FOR UNKNOWN INDICATION
     Route: 065
  23. COSENTYX [Suspect]
     Active Substance: SECUKINUMAB
     Indication: PSORIASIS
  24. GABAPENTIN. [Concomitant]
     Active Substance: GABAPENTIN
  25. OXAZEPAM. [Concomitant]
     Active Substance: OXAZEPAM
  26. LEFLUNOMIDE. [Suspect]
     Active Substance: LEFLUNOMIDE
     Indication: PRODUCT USED FOR UNKNOWN INDICATION
     Route: 065

REACTIONS (8)
  - Pain in extremity [Recovering/Resolving]
  - Sjogren^s syndrome [Recovering/Resolving]
  - Arthralgia [Recovering/Resolving]
  - Gastrooesophageal reflux disease [Recovering/Resolving]
  - Lumbar vertebral fracture [Recovering/Resolving]
  - Spinal stenosis [Recovering/Resolving]
  - Back pain [Recovering/Resolving]
  - Injury [Recovering/Resolving]
